FAERS Safety Report 9209996 (Version 1)
Quarter: 2013Q2

REPORT INFORMATION
  Report Type: Spontaneous
  Country: US (occurrence: US)
  Receive Date: 20130404
  Receipt Date: 20130404
  Transmission Date: 20140414
  Serious: No
  Sender: FDA-Public Use
  Company Number: US-ASTELLAS-2013US002669

PATIENT
  Sex: Male

DRUGS (6)
  1. MYRBETRIQ [Suspect]
     Indication: POLLAKIURIA
     Dosage: 25 MG, UID/QD
     Route: 048
  2. MYRBETRIQ [Suspect]
     Dosage: 50 MG, UID/QD
     Route: 048
     Dates: end: 201303
  3. LIPITOR [Concomitant]
     Indication: PRODUCT USED FOR UNKNOWN INDICATION
     Dosage: UNK
     Route: 065
  4. ALLOPURINOL [Concomitant]
     Indication: PRODUCT USED FOR UNKNOWN INDICATION
     Dosage: UNK
     Route: 065
  5. UROXATRAL [Concomitant]
     Indication: PRODUCT USED FOR UNKNOWN INDICATION
     Dosage: UNK
     Route: 065
  6. DIOVAN [Concomitant]
     Indication: PRODUCT USED FOR UNKNOWN INDICATION
     Dosage: UNK
     Route: 065

REACTIONS (2)
  - Drug ineffective [Unknown]
  - Urine flow decreased [Not Recovered/Not Resolved]
